APPROVED DRUG PRODUCT: HOMATROPINE METHYLBROMIDE AND HYDROCODONE BITARTRATE
Active Ingredient: HOMATROPINE METHYLBROMIDE; HYDROCODONE BITARTRATE
Strength: 1.5MG;5MG
Dosage Form/Route: TABLET;ORAL
Application: A207176 | Product #001 | TE Code: AA
Applicant: AVANTHI INC
Approved: Aug 7, 2017 | RLD: No | RS: Yes | Type: RX